FAERS Safety Report 4333305-3 (Version None)
Quarter: 2004Q2

REPORT INFORMATION
  Report Type: 
  Country: None (occurrence: None)
  Receive Date: 20040401
  Receipt Date: 32000321
  Transmission Date: 20050107
  Serious: Yes (Death)
  Sender: FDA-Public Use
  Company Number: NSADSS2002009995

PATIENT
  Age: 66 Year
  Sex: Female
  Weight: 49.4421 kg

DRUGS (3)
  1. RISPERDAL [Suspect]
     Dosage: ORAL
     Route: 048
  2. SYNTHROID [Concomitant]
  3. LISINOPRIL [Concomitant]

REACTIONS (1)
  - DEATH [None]
